FAERS Safety Report 20774921 (Version 1)
Quarter: 2022Q2

REPORT INFORMATION
  Report Type: Other
  Country: None (occurrence: US)
  Receive Date: 20220502
  Receipt Date: 20220502
  Transmission Date: 20220720
  Serious: No
  Sender: FDA-Public Use
  Company Number: US-P+L Developments of Newyork Corporation-2128372

PATIENT
  Age: 50 Year
  Sex: Male

DRUGS (6)
  1. FAMOTIDINE [Suspect]
     Active Substance: FAMOTIDINE
     Indication: Product used for unknown indication
     Route: 042
  2. IPRATROPIUM BROMIDE AND ALBUTEROL SULFATE [Suspect]
     Active Substance: ALBUTEROL SULFATE\IPRATROPIUM BROMIDE
     Route: 065
  3. RACEPINEPHRINE [Suspect]
     Active Substance: RACEPINEPHRINE
     Route: 065
  4. DEXAMETHASONE [Suspect]
     Active Substance: DEXAMETHASONE
     Route: 042
  5. EPINEPHRINE [Suspect]
     Active Substance: EPINEPHRINE
     Route: 030
  6. EPINEPHRINE [Suspect]
     Active Substance: EPINEPHRINE
     Route: 042

REACTIONS (3)
  - Drug ineffective [Recovered/Resolved]
  - Respiratory fatigue [Recovered/Resolved]
  - Stridor [Recovered/Resolved]
